FAERS Safety Report 9740257 (Version 1)
Quarter: 2013Q4

REPORT INFORMATION
  Report Type: Spontaneous
  Country: US (occurrence: US)
  Receive Date: 20131209
  Receipt Date: 20131209
  Transmission Date: 20140711
  Serious: No
  Sender: FDA-Public Use
  Company Number: US-BIOGENIDEC-2013BI093348

PATIENT
  Age: 61 Year
  Sex: Female

DRUGS (17)
  1. TECFIDERA [Suspect]
     Indication: MULTIPLE SCLEROSIS
     Route: 048
     Dates: start: 20130823
  2. TECFIDERA [Suspect]
     Indication: MULTIPLE SCLEROSIS
     Route: 048
     Dates: start: 20130913
  3. NORITATE [Concomitant]
  4. LOTREL [Concomitant]
  5. VAGIFEM [Concomitant]
  6. BACLOFEN [Concomitant]
  7. OXAZEPAM [Concomitant]
  8. NEXIUM [Concomitant]
  9. CLONAZEPAM [Concomitant]
  10. CALCIUM [Concomitant]
  11. VITAMIN D [Concomitant]
  12. BULTRAM [Concomitant]
  13. LACTOSE [Concomitant]
  14. NYSTATIN [Concomitant]
  15. DOMEPERIDONE [Concomitant]
  16. BUTRANS [Concomitant]
  17. VITAMIN D3 [Concomitant]

REACTIONS (6)
  - Disorientation [Recovered/Resolved]
  - Constipation [Not Recovered/Not Resolved]
  - Flushing [Unknown]
  - Nausea [Not Recovered/Not Resolved]
  - Hot flush [Not Recovered/Not Resolved]
  - Abdominal pain [Not Recovered/Not Resolved]
